FAERS Safety Report 23250662 (Version 1)
Quarter: 2023Q4

REPORT INFORMATION
  Report Type: Spontaneous
  Country: IE (occurrence: IE)
  Receive Date: 20231201
  Receipt Date: 20231201
  Transmission Date: 20240109
  Serious: Yes (Hospitalization)
  Sender: FDA-Public Use
  Company Number: IE-MYLANLABS-2023M1062971

PATIENT
  Sex: Male

DRUGS (1)
  1. CLOZARIL [Suspect]
     Active Substance: CLOZAPINE
     Indication: Schizophrenia
     Dosage: 300 MILLIGRAM, QD (250 MG AT NIGHT AND 50 MG CLOZARIL IN THE MORNING)
     Route: 048
     Dates: start: 20010701

REACTIONS (2)
  - Fall [Unknown]
  - Dyskinesia [Unknown]
